FAERS Safety Report 9381446 (Version 1)
Quarter: 2013Q3

REPORT INFORMATION
  Report Type: Report from Study
  Country: AU (occurrence: AU)
  Receive Date: 20130703
  Receipt Date: 20130703
  Transmission Date: 20140515
  Serious: Yes (Hospitalization)
  Sender: FDA-Public Use
  Company Number: PHHY2013AU066692

PATIENT
  Age: 58 Year
  Sex: Male

DRUGS (7)
  1. CLOZARIL [Suspect]
     Dosage: 400 MG, UNK
     Dates: start: 20020709
  2. CLOZARIL [Suspect]
     Dosage: UNK
     Dates: start: 20130516, end: 20130602
  3. OLANZAPINE [Concomitant]
     Indication: SCHIZOPHRENIA
     Dosage: UNK UKN, UNK
     Route: 048
     Dates: start: 20130604
  4. CHOLECALCIFEROL [Concomitant]
     Indication: VITAMIN SUPPLEMENTATION
     Dosage: 25 MG, MANE
     Route: 048
  5. MAGNESIUM [Concomitant]
     Indication: VITAMIN SUPPLEMENTATION
     Dosage: 500 MG, BID
     Route: 048
  6. BENZODIAZEPINES [Concomitant]
     Indication: DREAMY STATE
     Dosage: 1 MG, MANE
     Route: 048
  7. SODIUM VALPROATE [Concomitant]
     Indication: AFFECTIVE DISORDER
     Dosage: 1000 MG, BID
     Route: 048

REACTIONS (7)
  - Mental impairment [Unknown]
  - Aggression [Unknown]
  - Irritability [Unknown]
  - Dysarthria [Unknown]
  - White blood cell count increased [Unknown]
  - Neutrophil count increased [Recovered/Resolved]
  - Lymphocyte count increased [Unknown]
